FAERS Safety Report 8869030 (Version 3)
Quarter: 2013Q1

REPORT INFORMATION
  Report Type: Spontaneous
  Country: US (occurrence: US)
  Receive Date: 20121027
  Receipt Date: 20130122
  Transmission Date: 20140127
  Serious: Yes (Hospitalization, Disabling, Other)
  Sender: FDA-Public Use
  Company Number: US-009507513-1202USA01293

PATIENT
  Sex: 0

DRUGS (14)
  1. FOSAMAX [Suspect]
     Indication: OSTEOPENIA
     Dosage: 70 MG, QW
     Route: 048
     Dates: start: 2005, end: 200802
  2. ALENDRONATE SODIUM [Suspect]
     Indication: OSTEOPENIA
     Dosage: 70 MG, QW
     Dates: start: 200803, end: 201005
  3. VITAMINS (UNSPECIFIED) [Concomitant]
     Dosage: UNK, QD
     Dates: start: 1980
  4. CALTRATE [Concomitant]
     Dosage: 400 MG, TID
     Dates: start: 1990
  5. VITAMIN D (UNSPECIFIED) [Concomitant]
     Dosage: 2000 MG, QD
     Dates: start: 1990
  6. MAG OX [Concomitant]
     Dosage: 400 MG, BID
     Dates: start: 1990
  7. AVANDIA [Concomitant]
     Dosage: UNK
     Dates: start: 2000
  8. EXFORGE [Concomitant]
     Indication: HYPERTENSION
     Dosage: UNK
     Dates: start: 2000
  9. METFORMIN [Concomitant]
     Indication: DIABETES MELLITUS
     Dosage: UNK
     Dates: start: 2000
  10. PRANDIN (REPAGLINIDE) [Concomitant]
     Indication: DIABETES MELLITUS
     Dosage: UNK
     Dates: start: 2000
  11. BYETTA [Concomitant]
     Indication: DIABETES MELLITUS
     Dosage: UNK
     Dates: start: 2000
  12. LIPITOR [Concomitant]
     Indication: BLOOD CHOLESTEROL INCREASED
     Dosage: UNK
     Dates: start: 2000
  13. INSULIN HUMAN [Concomitant]
     Indication: DIABETES MELLITUS
  14. GLUCOPHAGE [Concomitant]
     Indication: DIABETES MELLITUS
     Dosage: 500 MG, BID

REACTIONS (39)
  - Femur fracture [Not Recovered/Not Resolved]
  - Open reduction of fracture [Not Recovered/Not Resolved]
  - Device failure [Not Recovered/Not Resolved]
  - Pubis fracture [Not Recovered/Not Resolved]
  - Tibia fracture [Unknown]
  - Internal fixation of fracture [Unknown]
  - Radius fracture [Unknown]
  - Fall [Unknown]
  - Pelvic fracture [Unknown]
  - Hip arthroplasty [Unknown]
  - Biopsy breast [Unknown]
  - Deformity [Unknown]
  - Hiatus hernia [Unknown]
  - Tooth extraction [Unknown]
  - Device dislocation [Recovered/Resolved]
  - Spinal osteoarthritis [Unknown]
  - Injury [Unknown]
  - Tryptase increased [Unknown]
  - Intervertebral disc protrusion [Recovered/Resolved]
  - Retinopathy [Unknown]
  - Intervertebral disc degeneration [Unknown]
  - Spondylolisthesis [Unknown]
  - Cyst [Unknown]
  - Transfusion [Unknown]
  - Osteoarthritis [Unknown]
  - Vascular calcification [Unknown]
  - Fibula fracture [Unknown]
  - Haemarthrosis [Unknown]
  - Contusion [Unknown]
  - Urinary tract infection enterococcal [Unknown]
  - Pelvic haematoma [Unknown]
  - Atelectasis [Unknown]
  - Glaucoma [Unknown]
  - Retinitis [Unknown]
  - Anaemia [Unknown]
  - Retinal implant [Unknown]
  - Monoclonal immunoglobulin present [Unknown]
  - Gastrooesophageal reflux disease [Unknown]
  - Pain in extremity [Unknown]
